FAERS Safety Report 23250096 (Version 1)
Quarter: 2023Q4

REPORT INFORMATION
  Report Type: Spontaneous
  Country: CN (occurrence: CN)
  Receive Date: 20231201
  Receipt Date: 20231201
  Transmission Date: 20240109
  Serious: Yes (Other)
  Sender: FDA-Public Use
  Company Number: CN-ELI_LILLY_AND_COMPANY-CN202311002795

PATIENT
  Age: 17 Year
  Sex: Female
  Weight: 83 kg

DRUGS (3)
  1. OLANZAPINE [Suspect]
     Active Substance: OLANZAPINE
     Indication: Schizophrenia
     Dosage: BID?DAILY DOSE: 20 MILLIGRAM
     Route: 048
     Dates: start: 20230625, end: 20230709
  2. OLANZAPINE [Suspect]
     Active Substance: OLANZAPINE
     Indication: Schizophrenia
     Dosage: 10 MG, DAILY (EVERY NIGHT)?DAILY DOSE: 10 MILLIGRAM
     Route: 048
     Dates: start: 20230710, end: 20230810
  3. RISPERIDONE [Concomitant]
     Active Substance: RISPERIDONE
     Indication: Schizophrenia
     Dosage: DAILY DOSE: 4 MILLIGRAM
     Route: 048
     Dates: start: 20230625, end: 20230810

REACTIONS (1)
  - Oculogyric crisis [Recovering/Resolving]

NARRATIVE: CASE EVENT DATE: 20230702
